FAERS Safety Report 6525601-6 (Version None)
Quarter: 2010Q1

REPORT INFORMATION
  Report Type: 
  Country: None (occurrence: None)
  Receive Date: 20100104
  Receipt Date: 20091229
  Transmission Date: 20100710
  Serious: Yes (Other)
  Sender: FDA-Public Use
  Company Number: UG-B.I. PHARMACEUTICALS,INC./RIDGEFIELD-2009-BP-14620BP

PATIENT
  Age: 35 Year
  Sex: Female

DRUGS (5)
  1. VIRAMUNE [Suspect]
     Indication: ANTIVIRAL TREATMENT
     Dosage: 400 MG
     Route: 048
     Dates: start: 20080804
  2. VIRAMUNE [Suspect]
     Dosage: 200 MG
     Route: 048
     Dates: start: 20080721, end: 20080804
  3. SUSTIVA [Suspect]
     Indication: ANTIVIRAL TREATMENT
     Dosage: 600 MG
     Route: 048
     Dates: start: 20070503, end: 20080721
  4. VIDEX [Suspect]
     Indication: ANTIVIRAL TREATMENT
     Dosage: 250 MG
     Route: 048
     Dates: start: 20070503
  5. ALUVIA [Concomitant]
     Dosage: 1500 MG

REACTIONS (1)
  - ABORTION INDUCED [None]
